FAERS Safety Report 4972899-1 (Version None)
Quarter: 2006Q2

REPORT INFORMATION
  Report Type: 
  Country: None (occurrence: None)
  Receive Date: 20060410
  Receipt Date: 20060330
  Transmission Date: 20061013
  Serious: Yes (Other)
  Sender: FDA-Public Use
  Company Number: 231973K06USA

PATIENT
  Age: 32 Year
  Sex: Male

DRUGS (1)
  1. REBIF [Suspect]
     Indication: MULTIPLE SCLEROSIS
     Dosage: 44 MCG, 3 IN 1 WEEKS, SUBCUTANEOUS
     Route: 058
     Dates: start: 20050523

REACTIONS (14)
  - DYSPNOEA [None]
  - FOAMING AT MOUTH [None]
  - HAEMOPTYSIS [None]
  - INCORRECT ROUTE OF DRUG ADMINISTRATION [None]
  - INJECTION SITE DISCOLOURATION [None]
  - INJECTION SITE SWELLING [None]
  - LOSS OF CONSCIOUSNESS [None]
  - PHARYNGEAL OEDEMA [None]
  - PYREXIA [None]
  - RESPIRATORY ARREST [None]
  - RETCHING [None]
  - TREMOR [None]
  - VENOUS INJURY [None]
  - WRONG TECHNIQUE IN DRUG USAGE PROCESS [None]
